FAERS Safety Report 8474760-7 (Version None)
Quarter: 2012Q2

REPORT INFORMATION
  Report Type: 
  Country: None (occurrence: None)
  Receive Date: 20120628
  Receipt Date: 20120619
  Transmission Date: 20120825
  Serious: Yes (Hospitalization)
  Sender: FDA-Public Use
  Company Number: JP-AMGEN-JPNCT2010006076

PATIENT
  Age: 81 Year
  Sex: Female
  Weight: 43 kg

DRUGS (14)
  1. IRINOTECAN HCL [Suspect]
     Indication: COLORECTAL CANCER
     Dosage: 100 MG, Q2WK
     Route: 041
     Dates: start: 20100824, end: 20100930
  2. LEUCOVORIN CALCIUM [Suspect]
     Indication: COLORECTAL CANCER
     Dosage: 200 MG/M2, Q2WK
     Route: 041
     Dates: start: 20100824, end: 20100930
  3. SIMVASTATIN [Suspect]
     Route: 048
  4. DECADRON [Suspect]
     Route: 042
  5. PANITUMUMAB [Suspect]
     Indication: COLORECTAL CANCER METASTATIC
     Dosage: 6 MG/KG, Q2WK
     Route: 041
     Dates: start: 20100824, end: 20100824
  6. AVASTIN [Suspect]
     Dosage: UNK UNK, UNK
     Route: 041
     Dates: start: 20100201, end: 20100501
  7. FLUOROURACIL [Suspect]
     Dosage: 2000 MG/M2, Q2WK
     Route: 041
     Dates: start: 20100824, end: 20100930
  8. KYTRIL [Suspect]
     Route: 042
  9. ANTIHISTAMINES [Concomitant]
     Indication: PROPHYLAXIS
     Dosage: UNK
     Route: 065
  10. PANITUMUMAB [Suspect]
     Dosage: 6 MG/KG, Q2WK
     Route: 041
     Dates: start: 20100916, end: 20100930
  11. PREDNISOLONE [Suspect]
     Route: 048
  12. CORTICOSTEROIDS [Concomitant]
     Indication: PROPHYLAXIS
     Dosage: UNK
     Route: 065
  13. FLUOROURACIL [Suspect]
     Indication: COLORECTAL CANCER
     Dosage: 400 MG/M2, Q2WK
     Route: 040
     Dates: start: 20100824, end: 20100930
  14. AVASTIN [Suspect]
     Indication: COLORECTAL CANCER
     Dosage: UNK
     Route: 041
     Dates: start: 20090601, end: 20100101

REACTIONS (5)
  - HYPOMAGNESAEMIA [None]
  - DECREASED APPETITE [None]
  - NEUROPATHY PERIPHERAL [None]
  - DERMATITIS ACNEIFORM [None]
  - DEEP VEIN THROMBOSIS [None]
